FAERS Safety Report 7653972-6 (Version None)
Quarter: 2011Q3

REPORT INFORMATION
  Report Type: 
  Country: None (occurrence: None)
  Receive Date: 20110803
  Receipt Date: 20110728
  Transmission Date: 20111222
  Serious: Yes (Hospitalization, Other)
  Sender: FDA-Public Use
  Company Number: US-PFIZER INC-2011092737

PATIENT
  Sex: Male

DRUGS (4)
  1. CHANTIX [Suspect]
     Indication: SMOKING CESSATION THERAPY
     Dosage: 1 MG, UNK
     Dates: start: 20071105, end: 20080101
  2. HYDROCODONE [Concomitant]
     Indication: BACK PAIN
     Dosage: UNK
     Dates: start: 20060101, end: 20090101
  3. CHANTIX [Suspect]
     Dosage: 1 MG, UNK
     Dates: start: 20090911, end: 20091123
  4. VALIUM [Concomitant]
     Indication: ANXIETY
     Dosage: UNK
     Dates: start: 20040101, end: 20090101

REACTIONS (7)
  - PANIC ATTACK [None]
  - COGNITIVE DISORDER [None]
  - ANXIETY [None]
  - INSOMNIA [None]
  - PSYCHOTIC DISORDER [None]
  - DEPRESSION [None]
  - AGGRESSION [None]
